FAERS Safety Report 23437693 (Version 1)
Quarter: 2024Q1

REPORT INFORMATION
  Report Type: Spontaneous
  Country: US (occurrence: None)
  Receive Date: 20240123
  Receipt Date: 20240123
  Transmission Date: 20240410
  Serious: Yes (Hospitalization)
  Sender: FDA-Public Use
  Company Number: None

PATIENT
  Sex: Male

DRUGS (1)
  1. HUMIRA [Suspect]
     Active Substance: ADALIMUMAB
     Indication: Crohn^s disease
     Dosage: 40 MG EVERY 14 DAYS SUBCUTANEOUSLY
     Route: 058
     Dates: start: 202401

REACTIONS (3)
  - Anal fissure [None]
  - Gastrointestinal haemorrhage [None]
  - Therapy interrupted [None]
